FAERS Safety Report 4320075-8 (Version None)
Quarter: 2004Q1

REPORT INFORMATION
  Report Type: 
  Country: None (occurrence: None)
  Receive Date: 20040315
  Receipt Date: 20040203
  Transmission Date: 20041129
  Serious: No
  Sender: FDA-Public Use
  Company Number: 2004197695US

PATIENT
  Sex: Female

DRUGS (2)
  1. BEXTRA [Suspect]
  2. CELEBREX [Suspect]

REACTIONS (1)
  - BLOOD PRESSURE ABNORMAL [None]
